FAERS Safety Report 20028153 (Version 4)
Quarter: 2022Q1

REPORT INFORMATION
  Report Type: Spontaneous
  Country: FR (occurrence: FR)
  Receive Date: 20211103
  Receipt Date: 20220127
  Transmission Date: 20220423
  Serious: Yes (Death, Other)
  Sender: FDA-Public Use
  Company Number: FR-AstraZeneca-2021A791748

PATIENT
  Age: 0 Year
  Sex: Male
  Weight: 5 kg

DRUGS (7)
  1. SYNAGIS [Suspect]
     Active Substance: PALIVIZUMAB
     Indication: Premature baby
     Dosage: ONCE/SINGLE ADMINISTRATION
     Route: 030
     Dates: start: 20211020, end: 20211020
  2. SYNAGIS [Suspect]
     Active Substance: PALIVIZUMAB
     Indication: Respiratory syncytial virus infection
  3. VITAMIN D [Concomitant]
     Active Substance: VITAMIN D NOS
     Indication: Hypovitaminosis
  4. FOLIC ACID [Concomitant]
     Active Substance: FOLIC ACID
     Indication: Hypovitaminosis
  5. FERROSTANE [Concomitant]
     Indication: Hypovitaminosis
     Dosage: 1 ML X 2 PER DAY
  6. GAVISCON [Concomitant]
     Active Substance: ALUMINUM HYDROXIDE\MAGNESIUM CARBONATE
     Indication: Hypovitaminosis
     Dosage: 1 ML X 6 PER DAY
  7. FLUOSTEROL [Concomitant]
     Indication: Hypovitaminosis

REACTIONS (5)
  - Sudden infant death syndrome [Fatal]
  - Sudden death [Unknown]
  - Neonatal respiratory arrest [Unknown]
  - Injection site pain [Unknown]
  - Hypophagia [Unknown]

NARRATIVE: CASE EVENT DATE: 20211022
